FAERS Safety Report 6121243-5 (Version None)
Quarter: 2009Q1

REPORT INFORMATION
  Report Type: 
  Country: None (occurrence: None)
  Receive Date: 20090312
  Receipt Date: 20090224
  Transmission Date: 20090719
  Serious: Yes (Hospitalization)
  Sender: FDA-Public Use
  Company Number: 000418

PATIENT
  Sex: Female
  Weight: 50 kg

DRUGS (2)
  1. LACOSAMIDE [Suspect]
     Indication: EPILEPSY
     Dosage: 50 MG BID, 100 MG BID, ORAL
     Route: 048
     Dates: start: 20090122
  2. LAMOTRIGINE [Suspect]
     Indication: EPILEPSY
     Dosage: 200 MG, BID, ORAL
     Route: 048
     Dates: start: 20080514

REACTIONS (4)
  - CONVULSION [None]
  - DISEASE RECURRENCE [None]
  - DRUG INTERACTION [None]
  - SOMATOFORM DISORDER [None]
